FAERS Safety Report 18487289 (Version 1)
Quarter: 2020Q4

REPORT INFORMATION
  Report Type: Spontaneous
  Country: US (occurrence: US)
  Receive Date: 20201110
  Receipt Date: 20201110
  Transmission Date: 20210114
  Serious: No
  Sender: FDA-Public Use
  Company Number: US-009507513-2010USA009101

PATIENT
  Sex: Female
  Weight: 65.7 kg

DRUGS (1)
  1. MAXALT [Suspect]
     Active Substance: RIZATRIPTAN BENZOATE

REACTIONS (1)
  - Hypersensitivity [Unknown]
